FAERS Safety Report 9889655 (Version 2)
Quarter: 2014Q1

REPORT INFORMATION
  Report Type: Spontaneous
  Country: FR (occurrence: FR)
  Receive Date: 20140211
  Receipt Date: 20140224
  Transmission Date: 20141002
  Serious: Yes (Other)
  Sender: FDA-Public Use
  Company Number: FR-PFIZER INC-2014035224

PATIENT
  Age: 78 Year
  Sex: Female

DRUGS (6)
  1. SOLU-MEDROL [Suspect]
     Dosage: 500 MG, DAILY
     Route: 040
     Dates: start: 20130829
  2. INEXIUM [Concomitant]
     Dosage: 40 MG, UNK
  3. TEMERIT [Concomitant]
     Dosage: 5 MG
  4. AMLOR [Concomitant]
     Dosage: 5 MG, UNK
  5. ENDOXAN [Concomitant]
     Dosage: 1 G
  6. BACTRIM [Concomitant]
     Dosage: 400

REACTIONS (2)
  - Mania [Recovered/Resolved]
  - Confusional state [Recovered/Resolved]
